FAERS Safety Report 15400937 (Version 1)
Quarter: 2018Q3

REPORT INFORMATION
  Report Type: Spontaneous
  Country: US (occurrence: US)
  Receive Date: 20180919
  Receipt Date: 20180919
  Transmission Date: 20181010
  Serious: Yes (Hospitalization)
  Sender: FDA-Public Use
  Company Number: US-JNJFOC-20180915054

PATIENT
  Age: 60 Year
  Sex: Male

DRUGS (2)
  1. INVOKANA [Suspect]
     Active Substance: CANAGLIFLOZIN
     Indication: TYPE 2 DIABETES MELLITUS
     Route: 048
     Dates: end: 20160804
  2. INVOKANA [Suspect]
     Active Substance: CANAGLIFLOZIN
     Indication: TYPE 2 DIABETES MELLITUS
     Route: 048

REACTIONS (7)
  - Cellulitis [Not Recovered/Not Resolved]
  - Gangrene [Recovered/Resolved]
  - Fungal infection [Unknown]
  - Postoperative wound infection [Recovering/Resolving]
  - Toe amputation [Unknown]
  - Diabetic foot infection [Unknown]
  - Abscess limb [Unknown]

NARRATIVE: CASE EVENT DATE: 201607
